FAERS Safety Report 8977495 (Version 1)
Quarter: 2012Q4

REPORT INFORMATION
  Report Type: 
  Country: US (occurrence: US)
  Receive Date: 20121219
  Receipt Date: 20121219
  Transmission Date: 20130627
  Serious: Yes (Death)
  Sender: FDA-Public Use
  Company Number: US-BAYER-2012-131782

PATIENT
  Age: 75 Year
  Sex: Male
  Weight: 74.38 kg

DRUGS (12)
  1. SORAFENIB (RAF KINASE INHIBITOR) [Suspect]
     Indication: THYROID CANCER
     Dosage: 600 mg, QD
     Route: 048
     Dates: start: 20120524, end: 20121130
  2. EVEROLIMUS [Suspect]
     Indication: THYROID CANCER
     Dosage: 7.5 mg, QD
     Route: 048
     Dates: start: 20120524, end: 20121130
  3. AMITRIPTYLINE [Concomitant]
     Dosage: UNK
     Dates: start: 20120112
  4. AMLODIPINE [Concomitant]
     Dosage: UNK
     Dates: start: 20120112
  5. BRIMONIDINE TARTRATE W/TIMOLOL [Concomitant]
     Dosage: UNK
     Dates: start: 20120223
  6. CALCITROL [Concomitant]
     Dosage: UNK
     Dates: start: 20111006
  7. CENTRUM [Concomitant]
     Dosage: UNK
     Dates: start: 19960101
  8. IBUPROFEN [Concomitant]
     Dosage: UNK
     Dates: start: 20100311
  9. LEVOTHYROXINE [Concomitant]
     Dosage: UNK
     Dates: start: 20120112
  10. MEGESTROL [Concomitant]
     Dosage: UNK
     Dates: start: 20120607
  11. METOPROLOL [Concomitant]
     Dosage: UNK
     Dates: start: 19960101
  12. ZOCOR [Concomitant]
     Dosage: UNK
     Dates: start: 19960101

REACTIONS (1)
  - Sudden death [Fatal]
